FAERS Safety Report 4331028-8 (Version None)
Quarter: 2004Q1

REPORT INFORMATION
  Report Type: 
  Country: None (occurrence: None)
  Receive Date: 20040331
  Receipt Date: 20040318
  Transmission Date: 20041129
  Serious: Yes (Hospitalization, Other)
  Sender: FDA-Public Use
  Company Number: 2004007974

PATIENT
  Age: 68 Year
  Sex: Female

DRUGS (8)
  1. VFEND [Suspect]
     Indication: FUNGAL INFECTION
     Dosage: 400 MG (BID) ORAL
     Route: 048
     Dates: start: 20040118, end: 20040119
  2. GLIPIZIDE [Suspect]
     Indication: DIABETES MELLITUS
     Dosage: 5 MG (DAILY) ORAL
     Route: 048
     Dates: start: 20020101, end: 20040101
  3. LISINOPRIL [Concomitant]
  4. SIMVASTATIN [Concomitant]
  5. FUROSEMIDE [Concomitant]
  6. METRONIDAZOLE [Concomitant]
  7. VANCOMYCIN [Concomitant]
  8. ALL OTHER THERAPEUTIC PRODUCTS [Concomitant]

REACTIONS (5)
  - ACUTE MYELOID LEUKAEMIA [None]
  - BLOOD GLUCOSE FLUCTUATION [None]
  - COMA [None]
  - DRUG INTERACTION [None]
  - HYPOGLYCAEMIA [None]
